FAERS Safety Report 20103750 (Version 1)
Quarter: 2021Q4

REPORT INFORMATION
  Report Type: Spontaneous
  Country: US (occurrence: US)
  Receive Date: 20211123
  Receipt Date: 20211123
  Transmission Date: 20220303
  Serious: Yes (Other)
  Sender: FDA-Public Use
  Company Number: US-PFIZER INC-202101564304

PATIENT
  Age: 84 Year
  Sex: Male

DRUGS (1)
  1. VYNDAMAX [Suspect]
     Active Substance: TAFAMIDIS
     Indication: Amyloidosis
     Dosage: 61 MG

REACTIONS (16)
  - Cardiac amyloidosis [Unknown]
  - Hypothyroidism [Unknown]
  - Erectile dysfunction [Unknown]
  - Atrial fibrillation [Unknown]
  - Essential hypertension [Unknown]
  - Dermatophytosis of nail [Unknown]
  - Large intestine benign neoplasm [Unknown]
  - Dermatitis [Unknown]
  - Intervertebral disc degeneration [Unknown]
  - Benign prostatic hyperplasia [Unknown]
  - Spinal stenosis [Unknown]
  - Obesity [Unknown]
  - Lung disorder [Unknown]
  - Sleep apnoea syndrome [Unknown]
  - Chronic left ventricular failure [Unknown]
  - Lower urinary tract symptoms [Unknown]
